FAERS Safety Report 14823999 (Version 3)
Quarter: 2018Q3

REPORT INFORMATION
  Report Type: Report from Study
  Country: US (occurrence: US)
  Receive Date: 20180428
  Receipt Date: 20180712
  Transmission Date: 20181010
  Serious: Yes (Other)
  Sender: FDA-Public Use
  Company Number: PHEH2018US016528

PATIENT
  Sex: Male
  Weight: 117.9 kg

DRUGS (1)
  1. COSENTYX [Suspect]
     Active Substance: SECUKINUMAB
     Indication: PSORIASIS
     Dosage: 300 MG, QMO
     Route: 058
     Dates: start: 201802

REACTIONS (3)
  - Nasopharyngitis [Recovered/Resolved]
  - Sepsis [Unknown]
  - Drug ineffective [Unknown]
